FAERS Safety Report 4821938-7 (Version None)
Quarter: 2005Q4

REPORT INFORMATION
  Report Type: 
  Country: None (occurrence: None)
  Receive Date: 20051107
  Receipt Date: 20051101
  Transmission Date: 20060501
  Serious: Yes (Death)
  Sender: FDA-Public Use
  Company Number: PHHO2005JP17218

PATIENT
  Age: 58 Year
  Sex: Female

DRUGS (6)
  1. DIOVAN [Suspect]
     Dosage: 80 MG, QD
     Dates: start: 20030704, end: 20030705
  2. DIOVAN [Suspect]
     Dosage: 80 MG, BID
     Dates: start: 20030706
  3. VERAPAMIL [Concomitant]
     Dates: start: 20030703
  4. DIGOXIN [Concomitant]
     Indication: CARDIAC FAILURE
     Dates: start: 20030704
  5. ADALAT [Concomitant]
     Indication: HYPERTENSION
     Route: 048
     Dates: start: 20030703
  6. WARFARIN [Concomitant]
     Dates: start: 20030706

REACTIONS (1)
  - DEATH [None]
